FAERS Safety Report 8337051-0 (Version None)
Quarter: 2012Q2

REPORT INFORMATION
  Report Type: 
  Country: None (occurrence: None)
  Receive Date: 20120501
  Receipt Date: 20120426
  Transmission Date: 20120825
  Serious: Yes (Other)
  Sender: FDA-Public Use
  Company Number: GER/GER/12/0024110

PATIENT
  Age: 25 Year
  Sex: Female

DRUGS (2)
  1. TRIMIPRAMINE MALEATE [Suspect]
     Indication: DEPRESSION
     Dosage: 75 MG, 75 MG/DAY, ORAL
     Route: 048
     Dates: start: 20091217, end: 20101005
  2. SERTRALINE (SERTALINE) [Suspect]
     Indication: DEPRESSION
     Dosage: 75 MG, 75 MG/DAY, ORAL
     Route: 048
     Dates: start: 20091217, end: 20101005

REACTIONS (2)
  - MECONIUM IN AMNIOTIC FLUID [None]
  - MATERNAL EXPOSURE DURING PREGNANCY [None]
